FAERS Safety Report 8154975-8 (Version None)
Quarter: 2012Q1

REPORT INFORMATION
  Report Type: 
  Country: None (occurrence: None)
  Receive Date: 20120221
  Receipt Date: 20120207
  Transmission Date: 20120608
  Serious: Yes (Death, Other)
  Sender: FDA-Public Use
  Company Number: PL-CELGENEUS-129-50794-12020826

PATIENT
  Sex: Male

DRUGS (1)
  1. VIDAZA [Suspect]
     Route: 058

REACTIONS (4)
  - PULMONARY OEDEMA [None]
  - CARDIAC DISORDER [None]
  - DEATH [None]
  - PNEUMONIA [None]
